FAERS Safety Report 5013187-7 (Version None)
Quarter: 2006Q2

REPORT INFORMATION
  Report Type: 
  Country: None (occurrence: None)
  Receive Date: 20060530
  Receipt Date: 20060315
  Transmission Date: 20061013
  Serious: No
  Sender: FDA-Public Use
  Company Number: US-GLAXOSMITHKLINE-A0597702A

PATIENT
  Age: 59 Year
  Sex: Female

DRUGS (4)
  1. WELLBUTRIN XL [Suspect]
     Indication: DEPRESSION
     Dosage: 150MG PER DAY
     Route: 048
  2. LOTREL [Concomitant]
  3. ATENOLOL [Concomitant]
  4. LIPITOR [Concomitant]

REACTIONS (2)
  - FEELING ABNORMAL [None]
  - TINNITUS [None]
